FAERS Safety Report 6320511-1 (Version None)
Quarter: 2009Q3

REPORT INFORMATION
  Report Type: 
  Country: None (occurrence: None)
  Receive Date: 20090822
  Receipt Date: 20081114
  Transmission Date: 20100115
  Serious: No
  Sender: FDA-Public Use
  Company Number: US-ABBOTT-08P-163-0488146-00

PATIENT
  Sex: Male
  Weight: 86.26 kg

DRUGS (3)
  1. NIASPAN [Suspect]
     Indication: BLOOD CHOLESTEROL INCREASED
     Route: 048
     Dates: start: 20081113
  2. ASPIRIN [Concomitant]
     Indication: STENT PLACEMENT
     Dosage: UNKNOWN
     Route: 048
  3. MEDICATION FOR CONSTIPATION [Concomitant]
     Indication: CONSTIPATION
     Route: 048

REACTIONS (3)
  - DYSPNOEA [None]
  - FLUSHING [None]
  - SKIN WARM [None]
